FAERS Safety Report 17235834 (Version 1)
Quarter: 2020Q1

REPORT INFORMATION
  Report Type: Spontaneous
  Country: GB (occurrence: GB)
  Receive Date: 20200106
  Receipt Date: 20200106
  Transmission Date: 20200409
  Serious: Yes (Other)
  Sender: FDA-Public Use
  Company Number: GB-ACCORD-168132

PATIENT
  Age: 73 Year
  Sex: Female
  Weight: 73 kg

DRUGS (17)
  1. FEXOFENADINE [Concomitant]
     Active Substance: FEXOFENADINE HYDROCHLORIDE
     Dosage: PROBABLY STARTING IN MAY EACH YEAR
     Dates: start: 20190827
  2. TRAVOPROST. [Concomitant]
     Active Substance: TRAVOPROST
     Dosage: DROP INTO BOTH EYES AT NIGHT
     Dates: start: 20180911
  3. CODEINE PHOSPHATE/PARACETAMOL [Concomitant]
     Active Substance: ACETAMINOPHEN\CODEINE PHOSPHATE
     Dosage: FOUR TIMES/DAY
     Dates: start: 20181030
  4. OMEPRAZOLE. [Concomitant]
     Active Substance: OMEPRAZOLE
     Dates: start: 20180911
  5. TRIMETHOPRIM. [Concomitant]
     Active Substance: TRIMETHOPRIM
     Dosage: AT NIGHT
     Dates: start: 20180911
  6. CLOPIDOGREL [Suspect]
     Active Substance: CLOPIDOGREL BISULFATE
     Indication: PRODUCT USED FOR UNKNOWN INDICATION
     Dates: start: 20191106
  7. ACETYLSALICYLIC ACID [Concomitant]
     Active Substance: ASPIRIN
     Dates: start: 20191210
  8. VENTOLIN [Concomitant]
     Active Substance: ALBUTEROL SULFATE
     Route: 055
     Dates: start: 20180925
  9. LOPERAMIDE [Concomitant]
     Active Substance: LOPERAMIDE
     Dosage: 1-2 UP TO 4 TIMES DAILY
     Dates: start: 20180911
  10. PREDNISOLONE. [Concomitant]
     Active Substance: PREDNISOLONE
     Dosage: EACH MORNING FOR 7 DAYS
     Dates: start: 20191210
  11. MORPHINE [Concomitant]
     Active Substance: MORPHINE
     Indication: BACK PAIN
     Dosage: 4 HOURLY
     Dates: start: 20180911
  12. IRBESARTAN. [Concomitant]
     Active Substance: IRBESARTAN
     Dosage: AT NIGHT
     Dates: start: 20190622
  13. PARACETAMOL [Concomitant]
     Active Substance: ACETAMINOPHEN
     Dates: start: 20190730
  14. GLYCERYL TRINITRATE [Concomitant]
     Active Substance: NITROGLYCERIN
     Dates: start: 20191210
  15. QVAR [Concomitant]
     Active Substance: BECLOMETHASONE DIPROPIONATE
     Dosage: PUFF
     Route: 055
     Dates: start: 20180925
  16. TEGRETOL [Concomitant]
     Active Substance: CARBAMAZEPINE
     Dosage: AT BED TIME
     Dates: start: 20180911
  17. ZOMORPH [Concomitant]
     Active Substance: MORPHINE SULFATE
     Dates: start: 20190108

REACTIONS (2)
  - Joint swelling [Recovered/Resolved]
  - Arthralgia [Recovered/Resolved]

NARRATIVE: CASE EVENT DATE: 20191211
